FAERS Safety Report 9143189 (Version 1)
Quarter: 2013Q1

REPORT INFORMATION
  Report Type: Spontaneous
  Country: US (occurrence: US)
  Receive Date: 20130306
  Receipt Date: 20130306
  Transmission Date: 20140127
  Serious: No
  Sender: FDA-Public Use
  Company Number: US-ENDO PHARMACEUTICALS INC.-OPER20110028

PATIENT
  Sex: Female
  Weight: 72.64 kg

DRUGS (2)
  1. OPANA ER 30MG [Suspect]
     Indication: PAIN
     Route: 048
     Dates: start: 201012, end: 20110310
  2. OXYCODONE [Suspect]
     Indication: PAIN
     Route: 048
     Dates: start: 201012, end: 20110310

REACTIONS (1)
  - Exposure during pregnancy [Recovered/Resolved]
